FAERS Safety Report 15566520 (Version 1)
Quarter: 2018Q4

REPORT INFORMATION
  Report Type: Spontaneous
  Country: GB (occurrence: GB)
  Receive Date: 20181030
  Receipt Date: 20181030
  Transmission Date: 20190205
  Serious: Yes (Life-Threatening)
  Sender: FDA-Public Use
  Company Number: GB-TEVA-2018-GB-969430

PATIENT
  Age: 88 Year
  Sex: Female
  Weight: 53.8 kg

DRUGS (13)
  1. LANSOPRAZOLE. [Concomitant]
     Active Substance: LANSOPRAZOLE
     Dosage: 15 MILLIGRAM DAILY; MORNING
     Route: 048
  2. SIMVASTATIN. [Concomitant]
     Active Substance: SIMVASTATIN
     Dosage: 40 MILLIGRAM DAILY; NIGHT
     Route: 048
  3. FLUCLOMIX [Concomitant]
     Dosage: 4 GRAM DAILY;
     Route: 048
     Dates: end: 20180921
  4. PARACETAMOL [Concomitant]
     Active Substance: ACETAMINOPHEN
     Route: 048
  5. HUMIRA [Suspect]
     Active Substance: ADALIMUMAB
     Indication: RHEUMATOID ARTHRITIS
     Dosage: WITHHELD UNTIL RHEUMATOLOGY FOLLOW-UP?40MG/0.8ML
     Route: 058
     Dates: start: 20080222, end: 20180910
  6. MOVICOL [Concomitant]
     Active Substance: POLYETHYLENE GLYCOL 3350\POTASSIUM CHLORIDE\SODIUM BICARBONATE\SODIUM CHLORIDE
     Dosage: 2 DOSAGE FORMS DAILY; SACHET
     Route: 048
  7. FOLIC ACID. [Concomitant]
     Active Substance: FOLIC ACID
     Dosage: 5 MILLIGRAM DAILY; MORNING
     Route: 048
  8. METHOTREXATE. [Suspect]
     Active Substance: METHOTREXATE
     Dosage: 12.5 MILLIGRAM DAILY; MORNING. WITHHELD FOR TWO WEEKS DURING ADMISSION. GENERAL PRACTITIONER TO WITH
     Route: 048
     Dates: start: 20040427
  9. DALTEPARIN [Concomitant]
     Active Substance: DALTEPARIN
     Route: 061
  10. FERROUS FUMARATE [Concomitant]
     Active Substance: FERROUS FUMARATE
     Dosage: 210 MILLIGRAM DAILY; MORNING
     Route: 048
  11. CODEINE [Concomitant]
     Active Substance: CODEINE
     Route: 048
  12. FERROUS SULFATE. [Concomitant]
     Active Substance: FERROUS SULFATE
     Dosage: MORNING
     Route: 067
  13. PREGABALIN. [Concomitant]
     Active Substance: PREGABALIN
     Dosage: 300 MILLIGRAM DAILY;
     Route: 048

REACTIONS (5)
  - Infected neoplasm [Recovered/Resolved with Sequelae]
  - Discharge [Unknown]
  - Osteonecrosis of jaw [Unknown]
  - Fungal sepsis [Unknown]
  - Erythema [Unknown]

NARRATIVE: CASE EVENT DATE: 20180914
